FAERS Safety Report 13672487 (Version 1)
Quarter: 2017Q2

REPORT INFORMATION
  Report Type: Spontaneous
  Country: FR (occurrence: FR)
  Receive Date: 20170621
  Receipt Date: 20170621
  Transmission Date: 20170830
  Serious: Yes (Hospitalization, Other)
  Sender: FDA-Public Use
  Company Number: FR-ASTELLAS-2017US024384

PATIENT
  Age: 83 Year
  Sex: Female

DRUGS (4)
  1. BISOPROLOL HCT [Concomitant]
     Active Substance: BISOPROLOL FUMARATE\HYDROCHLOROTHIAZIDE
     Indication: PRODUCT USED FOR UNKNOWN INDICATION
     Dosage: 5/6.25 MG, UNKNOWN FREQ.
     Route: 065
  2. SOLIFENACIN [Suspect]
     Active Substance: SOLIFENACIN
     Indication: PRODUCT USED FOR UNKNOWN INDICATION
     Route: 065
  3. PRAVASTATIN. [Concomitant]
     Active Substance: PRAVASTATIN
     Indication: PRODUCT USED FOR UNKNOWN INDICATION
     Route: 065
  4. COUMARIN [Concomitant]
     Active Substance: COUMARIN
     Indication: PRODUCT USED FOR UNKNOWN INDICATION
     Dosage: UNK UNK, UNKNOWN FREQ.
     Route: 065

REACTIONS (12)
  - Rhabdomyolysis [Recovered/Resolved]
  - Gastrooesophageal reflux disease [Unknown]
  - Agitation [Unknown]
  - Confusional state [Recovered/Resolved]
  - General physical health deterioration [Recovering/Resolving]
  - Hepatocellular injury [Unknown]
  - Pneumonia [Unknown]
  - Temporal arteritis [Recovering/Resolving]
  - Cholestasis [Unknown]
  - Attention deficit/hyperactivity disorder [Unknown]
  - Aortic bruit [Unknown]
  - Musculoskeletal stiffness [Unknown]
